FAERS Safety Report 18647834 (Version 1)
Quarter: 2020Q4

REPORT INFORMATION
  Report Type: Spontaneous
  Country: US (occurrence: US)
  Receive Date: 20201221
  Receipt Date: 20201221
  Transmission Date: 20210114
  Serious: No
  Sender: FDA-Public Use
  Company Number: None

PATIENT
  Age: 73 Year
  Sex: Male
  Weight: 83.3 kg

DRUGS (7)
  1. OXYCODONE-ACETAMINOPHEN 10-325MG, ORAL [Concomitant]
  2. METFORMIN HCL 500MG, ORAL [Concomitant]
  3. VITAMIN D3 1.25 MG, ORAL [Concomitant]
  4. PREDNISONE 5MG, ORAL [Concomitant]
  5. PANTOPRAZOLE SODIUM 40MG, ORAL [Concomitant]
  6. ATORVASTATIN CALCIUM 40MG, ORAL [Concomitant]
  7. ABIRATERONE ACETATE. [Suspect]
     Active Substance: ABIRATERONE ACETATE
     Indication: PROSTATE CANCER
     Route: 048
     Dates: start: 20200829

REACTIONS (1)
  - Dysgeusia [None]

NARRATIVE: CASE EVENT DATE: 20201221
